FAERS Safety Report 14891718 (Version 3)
Quarter: 2019Q2

REPORT INFORMATION
  Report Type: Report from Study
  Country: NL (occurrence: NL)
  Receive Date: 20180514
  Receipt Date: 20190510
  Transmission Date: 20190711
  Serious: Yes (Hospitalization)
  Sender: FDA-Public Use
  Company Number: NL-ROCHE-2121167

PATIENT
  Age: 51 Year
  Sex: Male
  Weight: 80.3 kg

DRUGS (2)
  1. RO6895882 (CEA-IL2V) [Suspect]
     Active Substance: CERGUTUZUMAB AMUNALEUKIN
     Indication: NEOPLASM
     Dosage: FORM AND ROUTE AS PER PROTOCOL.?DATE OF MOST RECENT DOSE ON 23/APR/2018.
     Route: 042
     Dates: start: 20180416
  2. ATEZOLIZUMAB. [Suspect]
     Active Substance: ATEZOLIZUMAB
     Indication: NEOPLASM
     Dosage: DATE OF MOST RECENT DOSE PRIOR TO EVENT ONSET ON 16/APR/2018.
     Route: 042
     Dates: start: 20180416

REACTIONS (1)
  - Anaemia [Recovered/Resolved with Sequelae]

NARRATIVE: CASE EVENT DATE: 20180416
